FAERS Safety Report 6817714-6 (Version None)
Quarter: 2010Q3

REPORT INFORMATION
  Report Type: 
  Country: None (occurrence: None)
  Receive Date: 20100706
  Receipt Date: 20100624
  Transmission Date: 20110219
  Serious: Yes (Hospitalization)
  Sender: FDA-Public Use
  Company Number: JP-PFIZER INC-2010037419

PATIENT
  Age: 87 Year
  Sex: Male
  Weight: 47.9 kg

DRUGS (18)
  1. EPIRUBICIN HYDROCHLORIDE [Suspect]
     Indication: HEPATIC NEOPLASM MALIGNANT
     Dosage: 60 MG/DAY, INJ
     Dates: start: 20100301, end: 20100301
  2. GELATIN [Suspect]
     Indication: HEPATIC NEOPLASM MALIGNANT
     Dosage: 80 MG/DAY
     Dates: start: 20100301, end: 20100301
  3. AMLODIN [Concomitant]
     Route: 048
     Dates: end: 20100302
  4. AMLODIN [Concomitant]
     Dosage: UNK
     Route: 048
     Dates: start: 20100303
  5. ZANTAC [Concomitant]
     Route: 048
     Dates: end: 20100302
  6. PURSENNID [Concomitant]
     Route: 048
     Dates: end: 20100303
  7. RENIVACE [Concomitant]
     Dosage: UNK
     Route: 048
  8. MUCOSTA [Concomitant]
     Dosage: UNK
     Route: 048
  9. SIMVASTATIN [Concomitant]
     Dosage: UNK
     Route: 048
  10. LENDORMIN [Concomitant]
     Dosage: UNK
     Route: 048
  11. ALESION [Concomitant]
     Dosage: UNK
     Route: 048
  12. SENNA [Concomitant]
     Dosage: UNK
     Route: 048
     Dates: start: 20100304
  13. SALAZOSULFAPYRIDINE [Concomitant]
     Dosage: UNK
     Route: 048
  14. FAMOTIDINE [Concomitant]
     Dosage: UNK
     Route: 048
     Dates: start: 20100303
  15. LOXONIN [Concomitant]
     Route: 048
     Dates: start: 20100303, end: 20100303
  16. CEFAZOLIN SODIUM [Concomitant]
     Route: 042
     Dates: start: 20100301, end: 20100308
  17. ROHYPNOL [Concomitant]
     Dosage: UNK
     Route: 048
     Dates: start: 20100304
  18. FLIVAS [Concomitant]
     Dosage: UNK
     Route: 048
     Dates: start: 20100310

REACTIONS (1)
  - BILOMA [None]
